FAERS Safety Report 10231480 (Version 2)
Quarter: 2014Q2

REPORT INFORMATION
  Report Type: Spontaneous
  Country: JP (occurrence: JP)
  Receive Date: 20140611
  Receipt Date: 20140616
  Transmission Date: 20141212
  Serious: Yes (Death, Other)
  Sender: FDA-Public Use
  Company Number: JP-PFIZER INC-2014153316

PATIENT
  Age: 74 Year
  Sex: Male

DRUGS (4)
  1. METHOTREXATE SODIUM [Suspect]
     Indication: BLADDER CANCER
  2. CISPLATIN [Suspect]
     Indication: BLADDER CANCER
  3. ADRIACIN [Suspect]
     Indication: BLADDER CANCER
  4. VINBLASTINE [Suspect]
     Indication: BLADDER CANCER

REACTIONS (3)
  - Febrile neutropenia [Fatal]
  - Epiglottitis [Fatal]
  - Pneumonia [Fatal]
